FAERS Safety Report 5804316-3 (Version None)
Quarter: 2008Q3

REPORT INFORMATION
  Report Type: 
  Country: None (occurrence: None)
  Receive Date: 20080707
  Receipt Date: 20080707
  Transmission Date: 20090109
  Serious: Yes (Life-Threatening, Hospitalization)
  Sender: FDA-Public Use
  Company Number: None

PATIENT
  Sex: Female
  Weight: 49.8957 kg

DRUGS (1)
  1. OTC QUININE [Suspect]
     Indication: MUSCLE SPASMS
     Dosage: 1-2 TABLETS TID PO
     Route: 048
     Dates: start: 20080301, end: 20080601

REACTIONS (1)
  - THROMBOCYTOPENIA [None]
